FAERS Safety Report 17489766 (Version 1)
Quarter: 2020Q1

REPORT INFORMATION
  Report Type: Spontaneous
  Country: FR (occurrence: FR)
  Receive Date: 20200303
  Receipt Date: 20200303
  Transmission Date: 20200409
  Serious: Yes (Hospitalization, Other)
  Sender: FDA-Public Use
  Company Number: FR-MYLANLABS-2019M1048724

PATIENT
  Age: 78 Year
  Sex: Male
  Weight: 69.6 kg

DRUGS (13)
  1. TAMSULOSIN [Suspect]
     Active Substance: TAMSULOSIN
     Indication: TONSILLITIS
     Dosage: INCONNUE
     Route: 048
     Dates: start: 20160927, end: 20161003
  2. TAMSULOSIN [Suspect]
     Active Substance: TAMSULOSIN
     Dosage: INCONNUE
     Route: 048
     Dates: start: 20160929, end: 20161003
  3. RHINOFLUIMUCIL [Suspect]
     Active Substance: ACETYLCYSTEINE\BENZALKONIUM CHLORIDE\TUAMINOHEPTANE SULFATE
     Indication: TONSILLITIS
     Dosage: UNK
     Route: 045
     Dates: start: 20160927, end: 20161003
  4. PERINDOPRIL [Concomitant]
     Active Substance: PERINDOPRIL
     Indication: PRODUCT USED FOR UNKNOWN INDICATION
     Dosage: 8 MG, QD (1-0-0) DISCONTINUED SINCE 15 DAYS BECAUSE OF HYPOTENSION IN THE EVENINGS
     Route: 065
  5. RHINOFLUIMUCIL [Suspect]
     Active Substance: ACETYLCYSTEINE\BENZALKONIUM CHLORIDE\TUAMINOHEPTANE SULFATE
     Dosage: INCONNUE
     Route: 045
     Dates: start: 20160929, end: 20161003
  6. PREVISCAN                          /00261401/ [Concomitant]
     Active Substance: PENTOXIFYLLINE
     Indication: PRODUCT USED FOR UNKNOWN INDICATION
     Dosage: (0-0-1/2) AND (0-0-3/4) IN ALTERNATION
     Route: 065
  7. SURBRONC [Suspect]
     Active Substance: AMBROXOL HYDROCHLORIDE
     Indication: TONSILLITIS
     Dosage: INCONNUE
     Route: 048
     Dates: start: 20160927, end: 20161003
  8. IXPRIM [Concomitant]
     Active Substance: ACETAMINOPHEN\TRAMADOL HYDROCHLORIDE
     Indication: PRODUCT USED FOR UNKNOWN INDICATION
     Dosage: UNK, PRN (37.5/325 IF REQUIRED)
     Route: 065
  9. AMOXICILLIN. [Suspect]
     Active Substance: AMOXICILLIN
     Indication: TONSILLITIS
     Dosage: INCONNUE
     Route: 048
     Dates: start: 20160927, end: 20161002
  10. AMIODARONE [Concomitant]
     Active Substance: AMIODARONE
     Indication: PRODUCT USED FOR UNKNOWN INDICATION
     Dosage: 100 MILLIGRAM, QD (1/2 TABLET/DAY,)
  11. INSPRA [Concomitant]
     Active Substance: EPLERENONE
     Indication: PRODUCT USED FOR UNKNOWN INDICATION
     Dosage: 25 MG, QD
     Route: 065
  12. SYMBICORT [Concomitant]
     Active Substance: BUDESONIDE\FORMOTEROL FUMARATE DIHYDRATE
     Indication: PRODUCT USED FOR UNKNOWN INDICATION
     Dosage: 2 DOSAGE FORM, QD (1 PUFF(S), BID)
     Route: 065
  13. SIMVASTATIN. [Concomitant]
     Active Substance: SIMVASTATIN
     Indication: PRODUCT USED FOR UNKNOWN INDICATION
     Dosage: 20 MG, QD (0-0-1)
     Route: 065

REACTIONS (10)
  - Product use in unapproved indication [Unknown]
  - Hypotension [Unknown]
  - Blood pressure systolic increased [Unknown]
  - Chest discomfort [Unknown]
  - Odynophagia [Unknown]
  - Paraesthesia [Unknown]
  - Prostatitis [Unknown]
  - Pruritus [Not Recovered/Not Resolved]
  - Headache [Unknown]
  - Rash maculo-papular [Not Recovered/Not Resolved]

NARRATIVE: CASE EVENT DATE: 20160929
